FAERS Safety Report 14248380 (Version 1)
Quarter: 2017Q4

REPORT INFORMATION
  Report Type: Spontaneous
  Country: US (occurrence: US)
  Receive Date: 20171204
  Receipt Date: 20171204
  Transmission Date: 20180321
  Serious: Yes (Other)
  Sender: FDA-Public Use
  Company Number: US-TEVA-2017-US-830088

PATIENT
  Sex: Female

DRUGS (2)
  1. CLONAZEPAM - TEVA [Suspect]
     Active Substance: CLONAZEPAM
     Indication: SEIZURE
     Dosage: TWO TABLETS IN THE MORNING, ONE TABLET IN THE EVENING, AND AS NEEDED
     Dates: start: 201711, end: 201711
  2. TOPIRAMATE. [Concomitant]
     Active Substance: TOPIRAMATE

REACTIONS (4)
  - Product substitution issue [None]
  - Generalised tonic-clonic seizure [Recovered/Resolved]
  - Anxiety [Unknown]
  - Drug hypersensitivity [Not Recovered/Not Resolved]

NARRATIVE: CASE EVENT DATE: 201711
